FAERS Safety Report 8812476 (Version 2)
Quarter: 2012Q4

REPORT INFORMATION
  Report Type: 
  Country: JM (occurrence: JM)
  Receive Date: 20120927
  Receipt Date: 20121004
  Transmission Date: 20130627
  Serious: Yes (Death, Other)
  Sender: FDA-Public Use
  Company Number: PHHO2005JM05675

PATIENT
  Age: 71 Year
  Sex: Female

DRUGS (3)
  1. GLIVEC [Suspect]
     Indication: GASTROINTESTINAL STROMAL TUMOUR
     Dates: start: 20030123
  2. GLIVEC [Suspect]
     Dosage: 400 mg,
     Route: 048
     Dates: start: 200302, end: 200503
  3. FERROUS SULPHATE [Concomitant]
     Indication: IRON DEFICIENCY
     Dates: start: 200401, end: 200502

REACTIONS (12)
  - Death [Fatal]
  - Peritonitis [Unknown]
  - Depressed level of consciousness [Unknown]
  - Intestinal obstruction [Unknown]
  - Intestinal perforation [Unknown]
  - Abdominal pain [Unknown]
  - Pyrexia [Unknown]
  - Abdominal distension [Unknown]
  - Nausea [Unknown]
  - Vomiting [Unknown]
  - Dehydration [Unknown]
  - Gastrointestinal sounds abnormal [Unknown]
